FAERS Safety Report 23488691 (Version 1)
Quarter: 2024Q1

REPORT INFORMATION
  Report Type: Spontaneous
  Country: IN (occurrence: IN)
  Receive Date: 20240206
  Receipt Date: 20240206
  Transmission Date: 20240410
  Serious: Yes (Other)
  Sender: FDA-Public Use
  Company Number: IN-002147023-NVSC2024IN023677

PATIENT

DRUGS (1)
  1. RUXOLITINIB [Suspect]
     Active Substance: RUXOLITINIB
     Indication: Graft versus host disease
     Dosage: 10 MG, BID
     Route: 048

REACTIONS (7)
  - Diarrhoea [Unknown]
  - Anaemia [Unknown]
  - Weight increased [Unknown]
  - Asthenia [Unknown]
  - Hypokalaemia [Unknown]
  - Weight decreased [Unknown]
  - Malabsorption [Unknown]
